FAERS Safety Report 16159174 (Version 1)
Quarter: 2019Q2

REPORT INFORMATION
  Report Type: Spontaneous
  Country: GB (occurrence: GB)
  Receive Date: 20190404
  Receipt Date: 20190404
  Transmission Date: 20190711
  Serious: Yes (Other)
  Sender: FDA-Public Use
  Company Number: GB-ROCHE-2151260

PATIENT
  Sex: Female

DRUGS (2)
  1. MORPHINE [Concomitant]
     Active Substance: MORPHINE
     Indication: PAIN
  2. AVASTIN [Suspect]
     Active Substance: BEVACIZUMAB
     Indication: BRAIN NEOPLASM MALIGNANT
     Route: 065

REACTIONS (4)
  - Seizure [Unknown]
  - Balance disorder [Unknown]
  - Tremor [Unknown]
  - Hypoxia [Unknown]
